FAERS Safety Report 5211606-4 (Version None)
Quarter: 2007Q1

REPORT INFORMATION
  Report Type: 
  Country: None (occurrence: None)
  Receive Date: 20070118
  Receipt Date: 20070108
  Transmission Date: 20070707
  Serious: Yes (Hospitalization)
  Sender: FDA-Public Use
  Company Number: US-JNJFOC-20070101901

PATIENT
  Age: 87 Year
  Sex: Male

DRUGS (8)
  1. RAZADYNE ER [Suspect]
     Indication: DEMENTIA ALZHEIMER'S TYPE
     Route: 048
  2. NAMENDA [Interacting]
     Route: 048
  3. NAMENDA [Interacting]
     Route: 048
  4. NAMENDA [Interacting]
     Route: 048
  5. NAMENDA [Interacting]
     Indication: DEMENTIA ALZHEIMER'S TYPE
     Route: 048
  6. LANSOPRAZOLE [Concomitant]
  7. LEVOTHYROXINE SODIUM [Concomitant]
  8. SIMVASTATIN [Concomitant]

REACTIONS (2)
  - DRUG INTERACTION [None]
  - SYNCOPE [None]
